FAERS Safety Report 23972145 (Version 6)
Quarter: 2025Q3

REPORT INFORMATION
  Report Type: Spontaneous
  Country: US (occurrence: US)
  Receive Date: 20240613
  Receipt Date: 20250807
  Transmission Date: 20251021
  Serious: Yes (Hospitalization, Other)
  Sender: MDD OPERATIONS
  Company Number: US-MDD US Operations-MDD202304-001760

PATIENT
  Age: 66 Year
  Sex: Female
  Weight: 67.99 kg

DRUGS (29)
  1. APOKYN [Suspect]
     Active Substance: APOMORPHINE HYDROCHLORIDE
     Indication: Parkinson^s disease
     Dates: start: 20211207
  2. APOKYN [Suspect]
     Active Substance: APOMORPHINE HYDROCHLORIDE
     Indication: On and off phenomenon
     Route: 058
  3. APOKYN [Suspect]
     Active Substance: APOMORPHINE HYDROCHLORIDE
     Indication: Dyskinesia
     Dosage: 10MG/ML 3ML CARTRIDGE 1EA CART
     Route: 058
  4. APOKYN [Suspect]
     Active Substance: APOMORPHINE HYDROCHLORIDE
     Indication: On and off phenomenon
  5. APOKYN [Suspect]
     Active Substance: APOMORPHINE HYDROCHLORIDE
  6. APOKYN [Suspect]
     Active Substance: APOMORPHINE HYDROCHLORIDE
  7. FLEXERIL [Suspect]
     Active Substance: CYCLOBENZAPRINE HYDROCHLORIDE
     Indication: Product used for unknown indication
  8. CARBIDOPA\LEVODOPA [Concomitant]
     Active Substance: CARBIDOPA\LEVODOPA
     Indication: Parkinson^s disease
     Dosage: EACH DF OF 25/100 MG
  9. CARBIDOPA\LEVODOPA [Concomitant]
     Active Substance: CARBIDOPA\LEVODOPA
  10. AMANTADINE [Concomitant]
     Active Substance: AMANTADINE
     Indication: Parkinson^s disease
  11. AMANTADINE [Concomitant]
     Active Substance: AMANTADINE
  12. ACETAMINOPHEN\HYDROCODONE [Concomitant]
     Active Substance: ACETAMINOPHEN\HYDROCODONE
  13. LYRICA [Concomitant]
     Active Substance: PREGABALIN
  14. CELEXA [Concomitant]
     Active Substance: CITALOPRAM HYDROBROMIDE
  15. MIRAPEX [Concomitant]
     Active Substance: PRAMIPEXOLE DIHYDROCHLORIDE
  16. COMTAN [Concomitant]
     Active Substance: ENTACAPONE
  17. CALCIUM\VITAMIN D [Concomitant]
     Active Substance: CALCIUM\VITAMIN D
  18. XARELTO [Concomitant]
     Active Substance: RIVAROXABAN
  19. LOVENOX [Concomitant]
     Active Substance: ENOXAPARIN SODIUM
  20. COLLAGEN [Concomitant]
     Active Substance: COLLAGEN
  21. BIOTIN [Concomitant]
     Active Substance: BIOTIN
  22. BIOTIN [Concomitant]
     Active Substance: BIOTIN
  23. TYLENOL [Concomitant]
     Active Substance: ACETAMINOPHEN
  24. CONSTULOSE [Concomitant]
     Active Substance: LACTULOSE
  25. OXYCODONE HYDROCHLORIDE [Concomitant]
     Active Substance: OXYCODONE HYDROCHLORIDE
  26. Zinc-15 [Concomitant]
  27. MAGNESIUM [Concomitant]
     Active Substance: MAGNESIUM
  28. Culturelle 10B cell [Concomitant]
  29. CYCLOBENZAPRINE HYDROCHLORIDE [Concomitant]
     Active Substance: CYCLOBENZAPRINE HYDROCHLORIDE

REACTIONS (14)
  - Spinal operation [Unknown]
  - Joint injury [Recovered/Resolved]
  - Fall [Recovered/Resolved]
  - Femur fracture [Recovered/Resolved]
  - Hallucination [Recovered/Resolved]
  - Infection [Unknown]
  - Heart rate increased [Unknown]
  - Alopecia [Unknown]
  - COVID-19 [Unknown]
  - Sedation [Unknown]
  - Insomnia [Recovered/Resolved]
  - Incorrect dose administered by device [Unknown]
  - Product dispensing issue [Unknown]
  - Product use in unapproved indication [Unknown]

NARRATIVE: CASE EVENT DATE: 20250601
